FAERS Safety Report 6097596-3 (Version None)
Quarter: 2009Q1

REPORT INFORMATION
  Report Type: 
  Country: None (occurrence: None)
  Receive Date: 20090227
  Receipt Date: 20090105
  Transmission Date: 20090719
  Serious: No
  Sender: FDA-Public Use
  Company Number: A0761094A

PATIENT
  Age: 58 Year
  Sex: Female

DRUGS (6)
  1. IMITREX [Suspect]
     Indication: MIGRAINE
     Dosage: 6MG AS REQUIRED
     Route: 058
     Dates: start: 19940101
  2. SUMATRIPTAN SUCCINATE [Suspect]
     Indication: DRUG USE FOR UNKNOWN INDICATION
     Dosage: 100MG AS REQUIRED
     Route: 048
     Dates: start: 20081208
  3. BIAXIN [Suspect]
     Indication: COUGH
  4. PREDNISOLONE [Suspect]
     Indication: COUGH
  5. VESICARE [Concomitant]
  6. NADOL [Concomitant]

REACTIONS (2)
  - DRUG INEFFECTIVE [None]
  - HEADACHE [None]
